FAERS Safety Report 12098666 (Version 1)
Quarter: 2016Q1

REPORT INFORMATION
  Report Type: Other
  Country: RS (occurrence: RS)
  Receive Date: 20160222
  Receipt Date: 20160222
  Transmission Date: 20160526
  Serious: Yes (Death, Hospitalization)
  Sender: FDA-Public Use
  Company Number: RS-ORCHID HEALTHCARE-1048183

PATIENT
  Age: 24 Year
  Sex: Female

DRUGS (3)
  1. AMLODIPINE BESYLATE. [Suspect]
     Active Substance: AMLODIPINE BESYLATE
     Route: 065
  2. METFORMIN [Suspect]
     Active Substance: METFORMIN HYDROCHLORIDE
     Route: 065
  3. GLICLAZIDE [Suspect]
     Active Substance: GLICLAZIDE
     Route: 065

REACTIONS (10)
  - Shock [Unknown]
  - Metabolic acidosis [Unknown]
  - Drug level above therapeutic [Unknown]
  - Urine output decreased [Unknown]
  - Sinus tachycardia [Unknown]
  - Cardiac arrest [Fatal]
  - Hyperglycaemia [Unknown]
  - Intentional overdose [Fatal]
  - Hypotension [Fatal]
  - Bundle branch block right [Unknown]
